FAERS Safety Report 9015809 (Version 2)
Quarter: 2013Q1

REPORT INFORMATION
  Report Type: Spontaneous
  Country: NL (occurrence: NL)
  Receive Date: 20130116
  Receipt Date: 20130129
  Transmission Date: 20140127
  Serious: Yes (Other)
  Sender: FDA-Public Use
  Company Number: PHHY2013NL003047

PATIENT
  Sex: Male

DRUGS (1)
  1. METHYLPHENIDATE [Suspect]

REACTIONS (1)
  - Intentional drug misuse [Unknown]
